FAERS Safety Report 11316064 (Version 3)
Quarter: 2015Q3

REPORT INFORMATION
  Report Type: Report from Study
  Country: PT (occurrence: PT)
  Receive Date: 20150728
  Receipt Date: 20150812
  Transmission Date: 20151125
  Serious: Yes (Other)
  Sender: FDA-Public Use
  Company Number: PHHY2015PT074892

PATIENT
  Age: 39 Year
  Sex: Male

DRUGS (5)
  1. GABAPENTINA [Suspect]
     Active Substance: GABAPENTIN
     Dosage: 2400 MG, QD
     Route: 065
  2. GILENYA [Suspect]
     Active Substance: FINGOLIMOD HYDROCHLORIDE
     Indication: MULTIPLE SCLEROSIS
     Dosage: 0.5 MG, QD
     Route: 048
     Dates: start: 20130617
  3. TEGRETOL CR [Suspect]
     Active Substance: CARBAMAZEPINE
     Indication: TRIGEMINAL NEURALGIA
     Dosage: 400 CR MG+200 CR MG (BREAKFAST), 400 CR MG (LUNCH), 400 CR MG+200 CR MG (DINNER)
     Route: 065
  4. TEGRETOL CR [Suspect]
     Active Substance: CARBAMAZEPINE
     Dosage: 1600 MG, QD
     Route: 065
  5. GABAPENTINA [Suspect]
     Active Substance: GABAPENTIN
     Indication: TRIGEMINAL NEURALGIA
     Dosage: UNK
     Route: 065

REACTIONS (13)
  - Memory impairment [Not Recovered/Not Resolved]
  - Pain [Unknown]
  - Concomitant disease aggravated [Not Recovered/Not Resolved]
  - Depression [Not Recovered/Not Resolved]
  - Feeling abnormal [Not Recovered/Not Resolved]
  - Balance disorder [Not Recovered/Not Resolved]
  - Oral pain [Unknown]
  - Facial pain [Unknown]
  - Fall [Not Recovered/Not Resolved]
  - Lower limb fracture [Recovered/Resolved]
  - Cognitive disorder [Not Recovered/Not Resolved]
  - Fatigue [Not Recovered/Not Resolved]
  - Trigeminal neuralgia [Not Recovered/Not Resolved]

NARRATIVE: CASE EVENT DATE: 201503
